FAERS Safety Report 8600817 (Version 3)
Quarter: 2012Q4

REPORT INFORMATION
  Report Type: 
  Country: US (occurrence: US)
  Receive Date: 20120606
  Receipt Date: 20120920
  Transmission Date: 20130627
  Serious: No
  Sender: FDA-Public Use
  Company Number: US-ASTRAZENECA-2012SE34002

PATIENT
  Age: 52 Year
  Sex: Female
  Weight: 71.7 kg

DRUGS (2)
  1. NEXIUM [Suspect]
     Indication: GASTROOESOPHAGEAL REFLUX DISEASE
     Route: 048
     Dates: start: 20110922
  2. CRESTOR [Suspect]
     Indication: BLOOD CHOLESTEROL INCREASED
     Route: 048
     Dates: start: 20110911

REACTIONS (6)
  - Cough [Unknown]
  - Cough [Unknown]
  - Toothache [Unknown]
  - Malaise [Unknown]
  - Drug dose omission [Unknown]
  - Off label use [Unknown]
